FAERS Safety Report 5082877-2 (Version None)
Quarter: 2006Q3

REPORT INFORMATION
  Report Type: 
  Country: None (occurrence: None)
  Receive Date: 20060817
  Receipt Date: 20041029
  Transmission Date: 20061208
  Serious: Yes (Hospitalization)
  Sender: FDA-Public Use
  Company Number: AU-2004-BP-10980AU

PATIENT
  Sex: Female

DRUGS (2)
  1. MOBIC [Suspect]
     Route: 048
  2. MICARDIS [Suspect]
     Route: 048

REACTIONS (1)
  - HYPERKALAEMIA [None]
